FAERS Safety Report 8350290-8 (Version None)
Quarter: 2012Q2

REPORT INFORMATION
  Report Type: 
  Country: None (occurrence: None)
  Receive Date: 20120510
  Receipt Date: 20120507
  Transmission Date: 20120825
  Serious: Yes (Other)
  Sender: FDA-Public Use
  Company Number: US-PFIZER INC-2012110981

PATIENT
  Sex: Male
  Weight: 79.37 kg

DRUGS (3)
  1. NEURONTIN [Suspect]
     Indication: BACK PAIN
     Dosage: TWO PILL OF 300 MG DAILY AT BEDTIME
  2. ACCUPRIL [Suspect]
     Indication: HYPERTENSION
     Dosage: 40 MG, ONCE DAILY
  3. NEURONTIN [Suspect]
     Indication: PAIN IN EXTREMITY

REACTIONS (2)
  - ARTHROPATHY [None]
  - IMPAIRED WORK ABILITY [None]
